FAERS Safety Report 4324774-3 (Version None)
Quarter: 2004Q1

REPORT INFORMATION
  Report Type: 
  Country: None (occurrence: None)
  Receive Date: 20040326
  Receipt Date: 20040219
  Transmission Date: 20041129
  Serious: Yes (Other)
  Sender: FDA-Public Use
  Company Number: US-GLAXOSMITHKLINE-A0498860A

PATIENT
  Age: 18 Year
  Sex: Female

DRUGS (1)
  1. WELLBUTRIN [Suspect]
     Dosage: 300MG PER DAY
     Route: 048
     Dates: start: 20030903

REACTIONS (2)
  - CONVULSION [None]
  - MEDICATION ERROR [None]
